FAERS Safety Report 5776685-4 (Version None)
Quarter: 2008Q2

REPORT INFORMATION
  Report Type: 
  Country: None (occurrence: None)
  Receive Date: 20080618
  Receipt Date: 20080408
  Transmission Date: 20081010
  Serious: No
  Sender: FDA-Public Use
  Company Number: US-BAYER-200819685NA

PATIENT
  Age: 46 Year
  Sex: Female

DRUGS (5)
  1. AVELOX [Suspect]
     Indication: SINUSITIS
     Dosage: TOTAL DAILY DOSE: 400 MG  UNIT DOSE: 400 MG
     Route: 048
     Dates: start: 20080404
  2. AVELOX [Suspect]
     Dosage: TOTAL DAILY DOSE: 400 MG  UNIT DOSE: 400 MG
     Route: 048
     Dates: start: 20080405
  3. AVELOX [Suspect]
     Dosage: TOTAL DAILY DOSE: 400 MG  UNIT DOSE: 400 MG
     Route: 048
     Dates: start: 20080406, end: 20080408
  4. LEVOXYL [Concomitant]
  5. PRILOSEC [Concomitant]

REACTIONS (5)
  - ACCIDENTAL OVERDOSE [None]
  - FEELING HOT [None]
  - HOT FLUSH [None]
  - NAUSEA [None]
  - VOMITING [None]
